FAERS Safety Report 9162010 (Version 1)
Quarter: 2013Q1

REPORT INFORMATION
  Report Type: Spontaneous
  Country: US (occurrence: None)
  Receive Date: 20130225
  Receipt Date: 20130225
  Transmission Date: 20140127
  Serious: Yes (Hospitalization, Other)
  Sender: FDA-Public Use
  Company Number: USA/USA/13/0028169

PATIENT
  Age: 23 Year
  Sex: Female

DRUGS (12)
  1. FLUCONAZOLE (FLUCONAZOLE) [Suspect]
     Indication: CANDIDA INFECTION
     Route: 048
  2. FLUCONAZOLE (FLUCONAZOLE) [Suspect]
     Indication: CANDIDA INFECTION
     Route: 048
  3. FLUCONAZOLE (FLUCONAZOLE) [Suspect]
     Indication: CANDIDA INFECTION
     Route: 048
  4. FLUCONAZOLE (FLUCONAZOLE) [Suspect]
     Indication: CANDIDA INFECTION
     Route: 048
  5. FLUCONAZOLE (FLUCONAZOLE) [Suspect]
     Indication: CANDIDA INFECTION
     Route: 048
  6. FLUCONAZOLE (FLUCONAZOLE) [Suspect]
     Indication: CANDIDA INFECTION
     Route: 048
  7. AMPHOTERICIN B [Suspect]
  8. AMPHOTERICIN B [Suspect]
  9. FLUCONAZOLE (FLUCONAZOLE) [Suspect]
     Route: 042
  10. TERCONAZOLE [Suspect]
  11. AMPICILLIN [Suspect]
  12. GENTAMICIN [Suspect]

REACTIONS (5)
  - Premature rupture of membranes [None]
  - Vaginal haemorrhage [None]
  - Caesarean section [None]
  - Premature separation of placenta [None]
  - Exposure during pregnancy [None]
